FAERS Safety Report 11966265 (Version 5)
Quarter: 2019Q1

REPORT INFORMATION
  Report Type: Spontaneous
  Country: US (occurrence: US)
  Receive Date: 20160127
  Receipt Date: 20190122
  Transmission Date: 20190417
  Serious: Yes (Hospitalization)
  Sender: FDA-Public Use
  Company Number: US-ACTELION PHARMACEUTICALS US, INC.-A-US2016-130344

PATIENT
  Age: 76 Year
  Sex: Female
  Weight: 52.61 kg

DRUGS (2)
  1. VELETRI [Suspect]
     Active Substance: EPOPROSTENOL
     Indication: PULMONARY HYPERTENSION
     Dosage: 26 NG/KG, PER MIN
     Route: 042
     Dates: start: 20120510
  2. REVATIO [Concomitant]
     Active Substance: SILDENAFIL CITRATE

REACTIONS (7)
  - Fall [Unknown]
  - Application site discharge [Unknown]
  - Cerebrovascular accident [Unknown]
  - Skin exfoliation [Unknown]
  - Application site dryness [Unknown]
  - Scleroderma [Unknown]
  - Device issue [Unknown]
